FAERS Safety Report 5032158-8 (Version None)
Quarter: 2006Q2

REPORT INFORMATION
  Report Type: 
  Country: None (occurrence: None)
  Receive Date: 20060615
  Receipt Date: 20060607
  Transmission Date: 20061013
  Serious: Yes (Disabling)
  Sender: FDA-Public Use
  Company Number: HQWYE036508JUN06

PATIENT
  Age: 41 Year
  Sex: Male

DRUGS (3)
  1. RAPAMUNE [Suspect]
     Indication: PROPHYLAXIS AGAINST TRANSPLANT REJECTION
     Route: 048
     Dates: start: 20030430, end: 20050727
  2. PREDNISONE TAB [Concomitant]
  3. MYCOPHENOLATE MOFETIL [Concomitant]

REACTIONS (5)
  - DRUG INEFFECTIVE [None]
  - HAEMODIALYSIS [None]
  - PERITONEAL DIALYSIS [None]
  - PROTEINURIA [None]
  - TRANSPLANT REJECTION [None]
